FAERS Safety Report 9078127 (Version 1)
Quarter: 2013Q1

REPORT INFORMATION
  Report Type: Spontaneous
  Country: US (occurrence: US)
  Receive Date: 20130130
  Receipt Date: 20130130
  Transmission Date: 20140127
  Serious: No
  Sender: FDA-Public Use
  Company Number: US-ABBOTT-12P-163-0904839-00

PATIENT
  Age: 54 None
  Sex: Female
  Weight: 105.33 kg

DRUGS (15)
  1. HUMIRA 40 MG/0.8 ML PEN [Suspect]
     Indication: PSORIATIC ARTHROPATHY
     Route: 058
  2. HUMIRA 40 MG/0.8 ML PEN [Suspect]
     Indication: PSORIASIS
  3. NEURONTIN [Concomitant]
     Indication: RESTLESS LEGS SYNDROME
  4. MELOXICAM [Concomitant]
     Indication: PRODUCT USED FOR UNKNOWN INDICATION
  5. TYLENOL ARTHRITIS [Concomitant]
     Indication: PRODUCT USED FOR UNKNOWN INDICATION
  6. PREDNISONE [Concomitant]
     Indication: PRODUCT USED FOR UNKNOWN INDICATION
  7. ATENOLOL [Concomitant]
     Indication: HYPERTENSION
  8. ATENOLOL [Concomitant]
     Indication: TACHYCARDIA
  9. LISINOPRIL [Concomitant]
     Indication: HYPERTENSION
  10. AMITRIPTYLENE [Concomitant]
     Indication: FIBROMYALGIA
     Dosage: DAILY AT BEDTIME
  11. AMITRIPTYLENE [Concomitant]
     Indication: INSOMNIA
  12. PRILOSEC [Concomitant]
     Indication: GASTROOESOPHAGEAL REFLUX DISEASE
  13. DIAZEPAM [Concomitant]
     Indication: VERTIGO
     Dosage: 2 MG UP TO 5 TIMES DAILY
  14. DIAZEPAM [Concomitant]
     Indication: ANXIETY
  15. DIAZEPAM [Concomitant]
     Indication: HYPOTONIA

REACTIONS (8)
  - Asthma [Not Recovered/Not Resolved]
  - Upper respiratory tract congestion [Recovered/Resolved]
  - Pyrexia [Recovered/Resolved]
  - Bronchitis [Recovered/Resolved]
  - Sputum discoloured [Recovered/Resolved]
  - Drug ineffective [Not Recovered/Not Resolved]
  - Cough [Recovered/Resolved]
  - Pain in extremity [Unknown]
